FAERS Safety Report 12451220 (Version 1)
Quarter: 2016Q2

REPORT INFORMATION
  Report Type: Spontaneous
  Country: US (occurrence: None)
  Receive Date: 20160608
  Receipt Date: 20160608
  Transmission Date: 20160815
  Serious: Yes (Disabling, Other)
  Sender: FDA-Public Use
  Company Number: None

PATIENT
  Age: 73 Year
  Sex: Female

DRUGS (3)
  1. ATENOL 25 MG [Suspect]
     Active Substance: ATENOLOL
     Indication: HEART RATE IRREGULAR
     Dosage: 1 PILL DAILY, MOUTH
     Route: 048
  2. ZETIA [Concomitant]
     Active Substance: EZETIMIBE
  3. SIMVASTATIN. [Concomitant]
     Active Substance: SIMVASTATIN

REACTIONS (20)
  - Back pain [None]
  - Dry mouth [None]
  - Contusion [None]
  - Abdominal pain upper [None]
  - Urticaria [None]
  - Pain [None]
  - Pruritus [None]
  - Haemorrhage [None]
  - Hypoaesthesia [None]
  - Dyspnoea [None]
  - Inflammation [None]
  - Fatigue [None]
  - Pain in extremity [None]
  - Joint swelling [None]
  - Dry eye [None]
  - Ocular icterus [None]
  - Diarrhoea [None]
  - Muscular weakness [None]
  - Dizziness [None]
  - Chest discomfort [None]
